FAERS Safety Report 7350483-2 (Version None)
Quarter: 2011Q1

REPORT INFORMATION
  Report Type: 
  Country: None (occurrence: None)
  Receive Date: 20110309
  Receipt Date: 20110309
  Transmission Date: 20110831
  Serious: Yes (Hospitalization)
  Sender: FDA-Public Use
  Company Number: None

PATIENT
  Sex: Male
  Weight: 86 kg

DRUGS (2)
  1. BORTEZOMIB [Suspect]
     Indication: NON-HODGKIN'S LYMPHOMA
     Dosage: 1.4MG DAY 1, 4, 8, 11 IV
     Route: 042
     Dates: start: 20101102, end: 20110228
  2. EVEROLIMUS 5MG NOVARTIS [Suspect]
     Indication: NON-HODGKIN'S LYMPHOMA
     Dosage: 5MG DAILY PO
     Route: 048
     Dates: start: 20101102, end: 20110307

REACTIONS (3)
  - DYSPNOEA [None]
  - CHEST DISCOMFORT [None]
  - HAEMOGLOBIN DECREASED [None]
